FAERS Safety Report 20756942 (Version 1)
Quarter: 2022Q2

REPORT INFORMATION
  Report Type: Spontaneous
  Country: US (occurrence: US)
  Receive Date: 20220427
  Receipt Date: 20220427
  Transmission Date: 20220721
  Serious: Yes (Other)
  Sender: FDA-Public Use
  Company Number: US-PFIZER INC-202200378169

PATIENT

DRUGS (2)
  1. LYRICA [Suspect]
     Active Substance: PREGABALIN
     Indication: Burning feet syndrome
     Dosage: 150 MG, 2X/DAY
  2. LYRICA [Suspect]
     Active Substance: PREGABALIN
     Dosage: 12.5 MG (LAST LYRICA DOSE)

REACTIONS (15)
  - Drug withdrawal syndrome [Unknown]
  - Cerebral disorder [Unknown]
  - Tremor [Unknown]
  - Aphasia [Unknown]
  - Anxiety [Unknown]
  - Hyperhidrosis [Unknown]
  - Hot flush [Unknown]
  - Chills [Unknown]
  - Eye disorder [Unknown]
  - Diarrhoea [Unknown]
  - Vibratory sense increased [Unknown]
  - Confusional state [Unknown]
  - Nausea [Unknown]
  - Pruritus [Unknown]
  - Insomnia [Unknown]
